FAERS Safety Report 7825022-X (Version None)
Quarter: 2011Q4

REPORT INFORMATION
  Report Type: 
  Country: None (occurrence: None)
  Receive Date: 20111019
  Receipt Date: 20110329
  Transmission Date: 20120403
  Serious: No
  Sender: FDA-Public Use
  Company Number: US-BRISTOL-MYERS SQUIBB COMPANY-15643679

PATIENT
  Age: 60 Year
  Sex: Male

DRUGS (1)
  1. AVALIDE [Suspect]
     Dosage: 1DF:300/25 UNITS NOS PILLS

REACTIONS (1)
  - NO ADVERSE EVENT [None]
